FAERS Safety Report 9146173 (Version 1)
Quarter: 2013Q1

REPORT INFORMATION
  Report Type: Spontaneous
  Country: US (occurrence: US)
  Receive Date: 20130307
  Receipt Date: 20130307
  Transmission Date: 20140127
  Serious: Yes (Other)
  Sender: FDA-Public Use
  Company Number: PHEH2013US005349

PATIENT
  Age: 50 Year
  Sex: Female
  Weight: 73.9 kg

DRUGS (2)
  1. ZOMETA [Suspect]
     Indication: METASTASES TO BONE
     Dosage: UNK UKN, QMO
     Route: 042
     Dates: start: 20120206, end: 20120628
  2. XGEVA [Suspect]
     Indication: METASTASES TO BONE
     Dosage: 120 MG, QMO
     Route: 058
     Dates: start: 20120726, end: 20120820

REACTIONS (2)
  - Osteonecrosis of jaw [Unknown]
  - Gingival pain [Not Recovered/Not Resolved]
